FAERS Safety Report 8853440 (Version 1)
Quarter: 2012Q4

REPORT INFORMATION
  Report Type: Report from Study
  Country: FR (occurrence: FR)
  Receive Date: 20121022
  Receipt Date: 20121022
  Transmission Date: 20130627
  Serious: Yes (Hospitalization)
  Sender: FDA-Public Use
  Company Number: FR-GLAXOSMITHKLINE-B0836719A

PATIENT
  Age: 6 Year
  Sex: Female

DRUGS (2)
  1. HYCAMTIN [Suspect]
     Indication: NEOPLASM
     Dosage: .57MG Cyclic
     Route: 042
     Dates: start: 20120919
  2. TEMOZOLOMIDE [Suspect]
     Indication: NEOPLASM
     Dosage: 114.3MG Cyclic
     Route: 048
     Dates: start: 20120919

REACTIONS (1)
  - Febrile bone marrow aplasia [Not Recovered/Not Resolved]
